FAERS Safety Report 9454632 (Version 1)
Quarter: 2013Q3

REPORT INFORMATION
  Report Type: Spontaneous
  Country: GB (occurrence: GB)
  Receive Date: 20130812
  Receipt Date: 20130812
  Transmission Date: 20140515
  Serious: Yes (Hospitalization)
  Sender: FDA-Public Use
  Company Number: GB-PERRIGO-13GB008040

PATIENT
  Age: 18 Month
  Sex: Male
  Weight: 10.5 kg

DRUGS (2)
  1. IBUPROFEN [Suspect]
     Indication: PYREXIA
     Dosage: 50 MG; 6 DOSES
     Route: 048
  2. PARACETAMOL [Concomitant]
     Indication: PYREXIA
     Dosage: 120 MG, QID
     Route: 048

REACTIONS (6)
  - Renal failure acute [Recovering/Resolving]
  - Renal tubular necrosis [Recovering/Resolving]
  - Urine output decreased [Recovering/Resolving]
  - Hyperkalaemia [Recovering/Resolving]
  - Acidosis [Recovering/Resolving]
  - Azotaemia [Recovering/Resolving]
